FAERS Safety Report 7002048-X (Version None)
Quarter: 2010Q3

REPORT INFORMATION
  Report Type: 
  Country: None (occurrence: None)
  Receive Date: 20100917
  Receipt Date: 20100917
  Transmission Date: 20110219
  Serious: Yes (Life-Threatening, Hospitalization)
  Sender: FDA-Public Use
  Company Number: None

PATIENT
  Sex: Female
  Weight: 66.2252 kg

DRUGS (1)
  1. SIMCOR [Suspect]
     Dosage: 1 TAB PM 1 TIME A DAY
     Dates: start: 20100828

REACTIONS (6)
  - BURNING SENSATION [None]
  - DYSPNOEA [None]
  - ERYTHEMA [None]
  - PAIN [None]
  - PALPITATIONS [None]
  - POOR VENOUS ACCESS [None]
